FAERS Safety Report 8198710-6 (Version None)
Quarter: 2012Q1

REPORT INFORMATION
  Report Type: 
  Country: None (occurrence: None)
  Receive Date: 20120309
  Receipt Date: 20120131
  Transmission Date: 20120608
  Serious: No
  Sender: FDA-Public Use
  Company Number: US-AMGEN-USASP2011041858

PATIENT
  Age: 84 Year
  Sex: Female

DRUGS (6)
  1. NORVASC [Concomitant]
     Dosage: UNK
  2. PROLIA [Suspect]
     Indication: OSTEOPOROSIS POSTMENOPAUSAL
     Dosage: UNK
     Dates: start: 20110616
  3. COZAAR [Concomitant]
     Dosage: UNK
  4. NORVASC [Concomitant]
  5. COZAAR [Concomitant]
  6. IBUPROFEN (ADVIL) [Concomitant]
     Dosage: UNK

REACTIONS (14)
  - WHITE BLOOD CELL COUNT INCREASED [None]
  - BLOOD CHOLESTEROL INCREASED [None]
  - RASH ERYTHEMATOUS [None]
  - MOBILITY DECREASED [None]
  - WEIGHT DECREASED [None]
  - POLLAKIURIA [None]
  - PRURITUS [None]
  - FATIGUE [None]
  - INSOMNIA [None]
  - OEDEMA PERIPHERAL [None]
  - DEPRESSED LEVEL OF CONSCIOUSNESS [None]
  - WHITE BLOOD CELL COUNT ABNORMAL [None]
  - PAIN IN EXTREMITY [None]
  - RASH [None]
